FAERS Safety Report 4675611-9 (Version None)
Quarter: 2005Q2

REPORT INFORMATION
  Report Type: 
  Country: None (occurrence: None)
  Receive Date: 20050527
  Receipt Date: 20050428
  Transmission Date: 20051028
  Serious: No
  Sender: FDA-Public Use
  Company Number: US-BRISTOL-MYERS SQUIBB COMPANY-12949376

PATIENT
  Age: 15 Year
  Sex: Male

DRUGS (1)
  1. ABILIFY [Suspect]
     Route: 048
     Dates: start: 20050422

REACTIONS (3)
  - DROOLING [None]
  - DYSPHAGIA [None]
  - TREMOR [None]
